FAERS Safety Report 9580101 (Version 1)
Quarter: 2013Q3

REPORT INFORMATION
  Report Type: Spontaneous
  Country: US (occurrence: None)
  Receive Date: 20130930
  Receipt Date: 20130930
  Transmission Date: 20140515
  Serious: No
  Sender: FDA-Public Use
  Company Number: None

PATIENT
  Age: 31 Year
  Sex: Female
  Weight: 102.06 kg

DRUGS (1)
  1. ENBREL [Suspect]
     Indication: RHEUMATOID ARTHRITIS
     Dosage: 1 SYRINGE WEEKLY, GIVEN INTO/UNDER THE SKIN
     Dates: start: 20130515, end: 20130815

REACTIONS (3)
  - Injection site pain [None]
  - Injection site pruritus [None]
  - Injection site erythema [None]
